FAERS Safety Report 17069759 (Version 2)
Quarter: 2019Q4

REPORT INFORMATION
  Report Type: Spontaneous
  Country: US (occurrence: US)
  Receive Date: 20191125
  Receipt Date: 20191203
  Transmission Date: 20200122
  Serious: Yes (Other)
  Sender: FDA-Public Use
  Company Number: US-ALKEM LABORATORIES LIMITED-US-ALKEM-2019-10017

PATIENT
  Age: 23 Year
  Sex: Male

DRUGS (3)
  1. METHADONE HYDROCHLORIDE. [Suspect]
     Active Substance: METHADONE HYDROCHLORIDE
     Indication: PRODUCT USED FOR UNKNOWN INDICATION
     Dosage: 30 MILLIGRAM, QD
     Route: 048
  2. METHADONE HYDROCHLORIDE. [Suspect]
     Active Substance: METHADONE HYDROCHLORIDE
     Dosage: 90 MILLIGRAM
     Route: 048
  3. NALTREXONE [Suspect]
     Active Substance: NALTREXONE
     Indication: REHABILITATION THERAPY
     Dosage: 50 MILLIGRAM, QD
     Route: 065

REACTIONS (5)
  - Deafness neurosensory [Not Recovered/Not Resolved]
  - Drug abuse [Unknown]
  - Respiratory arrest [Recovered/Resolved]
  - Overdose [Unknown]
  - Loss of consciousness [Recovered/Resolved]
